FAERS Safety Report 6854449-8 (Version None)
Quarter: 2010Q3

REPORT INFORMATION
  Report Type: 
  Country: None (occurrence: None)
  Receive Date: 20100717
  Receipt Date: 20080107
  Transmission Date: 20110219
  Serious: No
  Sender: FDA-Public Use
  Company Number: US-PFIZER INC-2008003469

PATIENT
  Sex: Female
  Weight: 63.5 kg

DRUGS (10)
  1. CHANTIX [Suspect]
     Indication: SMOKING CESSATION THERAPY
     Dates: start: 20071207
  2. BUSPAR [Concomitant]
  3. WELLBUTRIN [Concomitant]
  4. SUDAFED 12 HOUR [Concomitant]
  5. MONTELUKAST SODIUM [Concomitant]
  6. ZYRTEC [Concomitant]
  7. PREMARIN [Concomitant]
  8. PEPCID [Concomitant]
  9. PAXIL [Concomitant]
  10. DETROL LA [Concomitant]

REACTIONS (1)
  - HEADACHE [None]
